FAERS Safety Report 9779427 (Version 1)
Quarter: 2013Q4

REPORT INFORMATION
  Report Type: Spontaneous
  Country: CL (occurrence: CL)
  Receive Date: 20131223
  Receipt Date: 20131223
  Transmission Date: 20140711
  Serious: Yes (Other)
  Sender: FDA-Public Use
  Company Number: CL-PFIZER INC-2013363842

PATIENT
  Age: 75 Year
  Sex: Female

DRUGS (7)
  1. XALATAN [Suspect]
     Indication: GLAUCOMA
     Dosage: 1 DROP PER EYE, 1X/DAY
     Route: 047
     Dates: start: 2003
  2. RANITIDINE [Concomitant]
  3. AZATHIOPRINE [Concomitant]
  4. PREDNISONE [Concomitant]
  5. ENALAPRIL [Concomitant]
  6. ATORVASTATIN [Concomitant]
  7. MELOXICAM [Concomitant]

REACTIONS (2)
  - Renal failure [Not Recovered/Not Resolved]
  - Gastritis [Not Recovered/Not Resolved]
